FAERS Safety Report 12140081 (Version 3)
Quarter: 2017Q2

REPORT INFORMATION
  Report Type: Spontaneous
  Country: HU (occurrence: HU)
  Receive Date: 20160303
  Receipt Date: 20170410
  Transmission Date: 20170829
  Serious: Yes (Hospitalization)
  Sender: FDA-Public Use
  Company Number: HU-TOLMAR, INC.-2016HU001952

PATIENT
  Sex: Male

DRUGS (1)
  1. ELIGARD [Suspect]
     Active Substance: LEUPROLIDE ACETATE
     Indication: PROSTATE CANCER
     Dosage: 22.5 MG, EVERY 12 WEEKS
     Route: 065
     Dates: start: 20160204

REACTIONS (4)
  - Phlebitis [None]
  - Abdominal pain [Unknown]
  - Anal fistula [Unknown]
  - Tendonitis [None]
